FAERS Safety Report 8995722 (Version 1)
Quarter: 2013Q1

REPORT INFORMATION
  Report Type: Spontaneous
  Country: US (occurrence: US)
  Receive Date: 20130103
  Receipt Date: 20130103
  Transmission Date: 20140127
  Serious: No
  Sender: FDA-Public Use
  Company Number: US-ABBOTT-12P-163-0972201-00

PATIENT
  Sex: Female
  Weight: 69.46 kg

DRUGS (3)
  1. SYNTHROID [Suspect]
     Indication: HYPOTHYROIDISM
     Route: 048
     Dates: start: 20120411, end: 201208
  2. SYNTHROID [Suspect]
     Route: 048
     Dates: start: 201208
  3. XANAX SR [Concomitant]
     Indication: PRODUCT USED FOR UNKNOWN INDICATION

REACTIONS (4)
  - Hyperthyroidism [Unknown]
  - Asthenia [Recovering/Resolving]
  - Amenorrhoea [Recovered/Resolved]
  - Hypothyroidism [Unknown]
